FAERS Safety Report 6425485-0 (Version None)
Quarter: 2009Q4

REPORT INFORMATION
  Report Type: 
  Country: None (occurrence: None)
  Receive Date: 20091103
  Receipt Date: 20091102
  Transmission Date: 20100525
  Serious: Yes (Hospitalization)
  Sender: FDA-Public Use
  Company Number: GB-PFIZER INC-2009270888

PATIENT
  Age: 62 Year
  Sex: Male

DRUGS (1)
  1. LIPITOR [Suspect]
     Indication: BLOOD CHOLESTEROL INCREASED
     Dosage: 40 MG, UNK
     Dates: end: 20090915

REACTIONS (6)
  - ABDOMINAL PAIN UPPER [None]
  - COLD SWEAT [None]
  - DRUG INTERACTION [None]
  - NAUSEA [None]
  - OCULAR ICTERUS [None]
  - SPUTUM DISCOLOURED [None]
